FAERS Safety Report 9342686 (Version 1)
Quarter: 2013Q2

REPORT INFORMATION
  Report Type: Spontaneous
  Country: US (occurrence: US)
  Receive Date: 20130611
  Receipt Date: 20130611
  Transmission Date: 20140414
  Serious: No
  Sender: FDA-Public Use
  Company Number: US-TEVA-410999USA

PATIENT
  Age: 51 Year
  Sex: Male

DRUGS (12)
  1. BENDAMUSTINE [Suspect]
     Indication: DIFFUSE LARGE B-CELL LYMPHOMA
     Dosage: CYCLE 1, DAY ONE AND TWO
     Route: 042
  2. BENDAMUSTINE [Suspect]
     Dosage: CYCLE 2, DAY ONE AND TWO
     Route: 042
  3. BENDAMUSTINE [Suspect]
     Dosage: CYCLE 3, DAY ONE AND TWO
     Route: 042
  4. BENDAMUSTINE [Suspect]
     Dosage: CYCLE 4, DAY ONE AND TWO
     Route: 042
  5. BENDAMUSTINE [Suspect]
     Dosage: CYCLE 5, DAY ONE AND TWO
     Route: 042
  6. BENDAMUSTINE [Suspect]
     Dosage: CYCLE 6, DAY ONE AND TWO
     Route: 042
  7. RITUXIMAB [Suspect]
  8. RITUXIMAB [Suspect]
  9. RITUXIMAB [Suspect]
  10. RITUXIMAB [Suspect]
  11. RITUXIMAB [Suspect]
  12. RITUXIMAB [Suspect]

REACTIONS (1)
  - Off label use [Unknown]
